FAERS Safety Report 6730507-3 (Version None)
Quarter: 2010Q2

REPORT INFORMATION
  Report Type: 
  Country: None (occurrence: None)
  Receive Date: 20100514
  Receipt Date: 20100503
  Transmission Date: 20101027
  Serious: Yes (Other)
  Sender: FDA-Public Use
  Company Number: 7003903

PATIENT
  Age: 54 Year
  Sex: Female

DRUGS (3)
  1. REBIF [Suspect]
     Indication: MULTIPLE SCLEROSIS
     Dosage: 44 MCG, 3 IN 1 WK, SUBCUTANEOUS
     Route: 058
     Dates: start: 20090430, end: 20100414
  2. BACLOFEN [Concomitant]
  3. ZANAFLEX [Concomitant]

REACTIONS (4)
  - ASTHENIA [None]
  - BREAST NEOPLASM [None]
  - FATIGUE [None]
  - INFLUENZA LIKE ILLNESS [None]
